FAERS Safety Report 4520159-5 (Version None)
Quarter: 2005Q1

REPORT INFORMATION
  Report Type: 
  Country: None (occurrence: None)
  Receive Date: 20041029
  Receipt Date: 20040726
  Transmission Date: 20050727
  Serious: Yes (Hospitalization)
  Sender: FDA-Public Use
  Company Number: US012767

PATIENT
  Age: 38 Year
  Sex: Male

DRUGS (8)
  1. PROVIGIL [Suspect]
     Indication: FATIGUE
     Dosage: 100 MG BID ORAL
     Route: 048
     Dates: start: 20031125, end: 20031204
  2. COMBIVIR [Concomitant]
  3. SUSTIVA [Concomitant]
  4. NORVASC [Concomitant]
  5. MONOPRIL [Concomitant]
  6. CELEBREX [Concomitant]
  7. AMBIEN [Concomitant]
  8. VIOXX [Concomitant]

REACTIONS (2)
  - HYPERSENSITIVITY [None]
  - LIVER FUNCTION TEST ABNORMAL [None]
